FAERS Safety Report 7749552-4 (Version None)
Quarter: 2011Q3

REPORT INFORMATION
  Report Type: 
  Country: None (occurrence: None)
  Receive Date: 20110914
  Receipt Date: 20110903
  Transmission Date: 20111222
  Serious: Yes (Other)
  Sender: FDA-Public Use
  Company Number: CA-ELI_LILLY_AND_COMPANY-CA201109001612

PATIENT
  Age: 60 Year
  Sex: Female

DRUGS (4)
  1. CALCIUM CARBONATE [Concomitant]
  2. FORTEO [Suspect]
     Dosage: 20 UG, QD
  3. FORTEO [Suspect]
     Indication: OSTEOPOROSIS
     Dosage: 20 UG, QD
     Dates: start: 20100224
  4. VITAMIN D [Concomitant]

REACTIONS (1)
  - SKIN CANCER [None]
